FAERS Safety Report 8697506 (Version 2)
Quarter: 2013Q4

REPORT INFORMATION
  Report Type: Spontaneous
  Country: US (occurrence: US)
  Receive Date: 20120801
  Receipt Date: 20131101
  Transmission Date: 20140711
  Serious: No
  Sender: FDA-Public Use
  Company Number: US-009507513-96042447

PATIENT
  Age: 73 Year
  Sex: Female

DRUGS (3)
  1. FOSAMAX [Suspect]
     Dosage: 10 MG, QD
     Route: 048
     Dates: start: 19951227
  2. MK-2933 [Concomitant]
  3. SYNTHROID [Concomitant]

REACTIONS (2)
  - Flatulence [Recovered/Resolved]
  - Arthralgia [Recovered/Resolved]
